FAERS Safety Report 24449755 (Version 1)
Quarter: 2024Q4

REPORT INFORMATION
  Report Type: Report from Study
  Country: DE (occurrence: DE)
  Receive Date: 20241017
  Receipt Date: 20241017
  Transmission Date: 20250115
  Serious: Yes (Hospitalization)
  Sender: ROCHE
  Company Number: DE-ROCHE-10000057166

PATIENT
  Age: 50 Year
  Sex: Male
  Weight: 87 kg

DRUGS (2)
  1. BEVACIZUMAB [Suspect]
     Active Substance: BEVACIZUMAB
     Indication: Neoplasm malignant
     Dosage: MOST RECENT DOSE ON 02-APR-2024
     Route: 042
     Dates: start: 20240314, end: 20240430
  2. TIPIRACIL HYDROCHLORIDE\TRIFLURIDINE [Suspect]
     Active Substance: TIPIRACIL HYDROCHLORIDE\TRIFLURIDINE
     Indication: Neoplasm malignant
     Dosage: DATE OF MOST RECENT DOSE: 28-APR-2024
     Route: 048
     Dates: start: 20240304, end: 20240428

REACTIONS (2)
  - Sepsis [Recovered/Resolved]
  - Vascular device infection [Recovered/Resolved]

NARRATIVE: CASE EVENT DATE: 20240416
